FAERS Safety Report 23738807 (Version 4)
Quarter: 2024Q2

REPORT INFORMATION
  Report Type: Spontaneous
  Country: JP (occurrence: JP)
  Receive Date: 20240413
  Receipt Date: 20240613
  Transmission Date: 20240716
  Serious: Yes (Hospitalization)
  Sender: FDA-Public Use
  Company Number: JP-ABBVIE-5713329

PATIENT
  Age: 81 Year
  Sex: Female
  Weight: 41 kg

DRUGS (18)
  1. RINVOQ [Suspect]
     Active Substance: UPADACITINIB
     Indication: Rheumatoid arthritis
     Dosage: FORM STRENGTH 15 MILLIGRAM
     Route: 048
     Dates: start: 20240118, end: 20240214
  2. SULFAMETHOXAZOLE\TRIMETHOPRIM [Suspect]
     Active Substance: SULFAMETHOXAZOLE\TRIMETHOPRIM
     Indication: Infection prophylaxis
     Route: 048
     Dates: start: 20240201, end: 20240214
  3. LANSOPRAZOLE [Concomitant]
     Active Substance: LANSOPRAZOLE
     Indication: Gastritis
     Dosage: 15 UNKNOWN
     Route: 048
  4. CELECOXIB [Concomitant]
     Active Substance: CELECOXIB
     Indication: Rheumatoid arthritis
     Dosage: 200 UNKNOWN
     Route: 048
     Dates: start: 20231012
  5. SULFASALAZINE [Concomitant]
     Active Substance: SULFASALAZINE
     Indication: Rheumatoid arthritis
     Dosage: 1000 UNKNOWN
     Route: 048
     Dates: start: 20230629
  6. AMPICILLIN AND SULBACTAM [Concomitant]
     Active Substance: AMPICILLIN SODIUM\SULBACTAM SODIUM
     Indication: Stevens-Johnson syndrome
     Dosage: TIME INTERVAL: 0.33333333 DAYS: 9 GRAM
     Dates: start: 20240211
  7. METHYLPREDNISOLONE [Concomitant]
     Active Substance: METHYLPREDNISOLONE
     Indication: Stevens-Johnson syndrome
     Dosage: 500 MILLIGRAM
     Dates: start: 20240213
  8. METHYLPREDNISOLONE [Concomitant]
     Active Substance: METHYLPREDNISOLONE
     Indication: Stevens-Johnson syndrome
     Dosage: 40 MILLIGRAM
     Dates: start: 20240216
  9. METHYLPREDNISOLONE [Concomitant]
     Active Substance: METHYLPREDNISOLONE
     Indication: Stevens-Johnson syndrome
     Dosage: 40 MILLIGRAM
     Dates: start: 20240216
  10. METHYLPREDNISOLONE [Concomitant]
     Active Substance: METHYLPREDNISOLONE
     Indication: Stevens-Johnson syndrome
     Dosage: 500 MILLIGRAM
     Dates: start: 20240213, end: 20240215
  11. PREDNISOLONE [Concomitant]
     Active Substance: PREDNISOLONE
     Indication: Stevens-Johnson syndrome
     Dosage: 30 MILLIGRAM
     Route: 048
     Dates: start: 20240223
  12. PREDNISOLONE [Concomitant]
     Active Substance: PREDNISOLONE
     Indication: Stevens-Johnson syndrome
     Route: 048
     Dates: start: 20240308
  13. PREDNISOLONE [Concomitant]
     Active Substance: PREDNISOLONE
     Indication: Stevens-Johnson syndrome
     Dosage: 5 MILLIGRAM
     Route: 048
     Dates: start: 20240308
  14. PREDNISOLONE [Concomitant]
     Active Substance: PREDNISOLONE
     Indication: Stevens-Johnson syndrome
     Dosage: LAST ADMIN DATE: FEB 2024
     Route: 048
     Dates: start: 20240223
  15. PREDNISOLONE [Concomitant]
     Active Substance: PREDNISOLONE
     Indication: Stevens-Johnson syndrome
     Dosage: 10 MILLIGRAM
     Route: 048
     Dates: start: 20240307
  16. PREDNISOLONE [Concomitant]
     Active Substance: PREDNISOLONE
     Indication: Stevens-Johnson syndrome
     Dosage: LAST ADMIN DATE: MAR 2024
     Route: 048
     Dates: start: 20240301
  17. PREDNISOLONE [Concomitant]
     Active Substance: PREDNISOLONE
     Indication: Stevens-Johnson syndrome
     Dosage: 20 MILLIGRAM
     Route: 048
     Dates: start: 20240301
  18. PREDNISOLONE [Concomitant]
     Active Substance: PREDNISOLONE
     Indication: Stevens-Johnson syndrome
     Dosage: LAST ADMIN DATE: MAR 2024
     Route: 048
     Dates: start: 20240307

REACTIONS (11)
  - Stomatitis [Recovering/Resolving]
  - Stevens-Johnson syndrome [Recovered/Resolved]
  - Feeding disorder [Unknown]
  - Chills [Unknown]
  - Pain [Unknown]
  - Glossodynia [Unknown]
  - Coating in mouth [Unknown]
  - Tongue coated [Unknown]
  - Tongue coated [Unknown]
  - Erythema [Unknown]
  - Abscess oral [Unknown]

NARRATIVE: CASE EVENT DATE: 20240101
